FAERS Safety Report 9605764 (Version 1)
Quarter: 2013Q4

REPORT INFORMATION
  Report Type: Spontaneous
  Country: US (occurrence: US)
  Receive Date: 20131008
  Receipt Date: 20131008
  Transmission Date: 20140711
  Serious: Yes (Hospitalization)
  Sender: FDA-Public Use
  Company Number: US-AMGEN-USASP2013045874

PATIENT
  Sex: Male

DRUGS (3)
  1. XGEVA [Suspect]
     Indication: BONE DISORDER
     Dosage: UNK
  2. CALCIUM [Concomitant]
     Dosage: 2000 MG, UNK
  3. VITAMIN D                          /00107901/ [Concomitant]

REACTIONS (1)
  - Hypocalcaemia [Unknown]
